FAERS Safety Report 7564390-3 (Version None)
Quarter: 2011Q2

REPORT INFORMATION
  Report Type: 
  Country: None (occurrence: None)
  Receive Date: 20110622
  Receipt Date: 20110609
  Transmission Date: 20111010
  Serious: Yes (Hospitalization, Other)
  Sender: FDA-Public Use
  Company Number: PHHY2011BR50769

PATIENT
  Sex: Female

DRUGS (1)
  1. EXFORGE [Suspect]
     Dosage: 320 MG VALSARTAN/5MG AMLODIPINE

REACTIONS (5)
  - WRONG TECHNIQUE IN DRUG USAGE PROCESS [None]
  - MICTURITION URGENCY [None]
  - INFARCTION [None]
  - BLOOD PRESSURE INCREASED [None]
  - DIZZINESS [None]
